FAERS Safety Report 9892098 (Version 2)
Quarter: 2014Q2

REPORT INFORMATION
  Report Type: Report from Study
  Country: JP (occurrence: JP)
  Receive Date: 20140212
  Receipt Date: 20140416
  Transmission Date: 20141212
  Serious: Yes (Other)
  Sender: FDA-Public Use
  Company Number: JP-OTSUKA-JP-2014-10650

PATIENT
  Age: 77 Year
  Sex: Male
  Weight: 51.5 kg

DRUGS (25)
  1. SAMSCA [Suspect]
     Indication: OEDEMA DUE TO CARDIAC DISEASE
     Dosage: 15 MG MILLIGRAM(S), QAM
     Route: 048
     Dates: start: 20130807, end: 20130816
  2. SAMSCA [Suspect]
     Dosage: 7.5 MG MILLIGRAM(S), QAM
     Route: 048
     Dates: start: 20130817, end: 20130902
  3. LASIX [Concomitant]
     Dosage: 60 MG MILLIGRAM(S), DAILY DOSE
     Route: 048
  4. LIPITOR [Concomitant]
     Dosage: 10 MG MILLIGRAM(S), DAILY DOSE
     Route: 048
  5. VEEN D [Concomitant]
     Dosage: 500 ML MILLILITRE(S), DAILY DOSE
     Route: 041
     Dates: start: 20130710, end: 20130814
  6. SIGMART [Concomitant]
     Indication: CARDIAC FAILURE
     Dosage: 15 MG MILLIGRAM(S), DAILY DOSE
     Route: 048
     Dates: start: 20130711
  7. HANP [Concomitant]
     Indication: CARDIAC FAILURE
     Dosage: 1000 MCG, DAILY DOSE
     Route: 042
     Dates: start: 20130712, end: 20130814
  8. SELARA [Concomitant]
     Dosage: 25 MG MILLIGRAM(S), DAILY DOSE
     Route: 048
     Dates: start: 20130712
  9. KREMEZIN [Concomitant]
     Dosage: 6 G GRAM(S), DAILY DOSE
     Route: 048
     Dates: start: 20130713, end: 20130823
  10. NICARPINE [Concomitant]
     Indication: CARDIAC FAILURE
     Dosage: 10 MG MILLIGRAM(S), DAILY DOSE
     Route: 041
     Dates: start: 20130715, end: 20130812
  11. LASIX [Concomitant]
     Indication: CARDIAC FAILURE
     Dosage: 20 MG MILLIGRAM(S), DAILY DOSE
     Route: 042
     Dates: start: 20130716, end: 20130814
  12. DIART [Concomitant]
     Indication: CARDIAC FAILURE
     Dosage: 90 MG MILLIGRAM(S), DAILY DOSE
     Route: 048
     Dates: start: 20130719
  13. BAYASPIRIN [Concomitant]
     Dosage: 100 MG MILLIGRAM(S), DAILY DOSE
     Route: 048
     Dates: start: 20130803
  14. MEROPENEM [Concomitant]
     Dosage: 1 G GRAM(S), DAILY DOSE
     Route: 041
     Dates: start: 20130805, end: 20130808
  15. PREDNISOLONE [Concomitant]
     Dosage: 40 MG MILLIGRAM(S), DAILY DOSE
     Route: 048
     Dates: start: 20130805, end: 20130807
  16. PREDNISOLONE [Concomitant]
     Dosage: 30 MG MILLIGRAM(S), DAILY DOSE
     Route: 048
     Dates: start: 20130808, end: 20130812
  17. PREDNISOLONE [Concomitant]
     Dosage: 20 MG MILLIGRAM(S), DAILY DOSE
     Route: 048
     Dates: start: 20130813, end: 20130815
  18. PREDNISOLONE [Concomitant]
     Dosage: 15 MG MILLIGRAM(S), DAILY DOSE
     Route: 048
     Dates: start: 20130816, end: 20130818
  19. PREDNISOLONE [Concomitant]
     Dosage: 10 MG MILLIGRAM(S), DAILY DOSE
     Route: 048
     Dates: start: 20130819, end: 20130821
  20. PREDNISOLONE [Concomitant]
     Dosage: 5 MG MILLIGRAM(S), DAILY DOSE
     Route: 048
     Dates: start: 20130822, end: 20130824
  21. PREDNISOLONE [Concomitant]
     Dosage: 0.25 MG MILLIGRAM(S), DAILY DOSE
     Route: 048
     Dates: start: 20130825, end: 20130827
  22. PROTERNOL-L [Concomitant]
     Indication: CARDIAC FAILURE
     Dosage: 0.2 G GRAM(S), DAILY DOSE
     Route: 042
     Dates: start: 20130813, end: 20130813
  23. AZILVA [Concomitant]
     Dosage: 20 MG MILLIGRAM(S), DAILY DOSE
     Route: 048
     Dates: start: 20130814, end: 20130830
  24. RASILEZ [Concomitant]
     Dosage: 150 MG MILLIGRAM(S), DAILY DOSE
     Route: 048
     Dates: start: 20130815
  25. CARDENALIN [Concomitant]
     Dosage: 2 MG MILLIGRAM(S), DAILY DOSE
     Route: 048
     Dates: start: 20130826

REACTIONS (2)
  - Pancytopenia [Recovering/Resolving]
  - Hepatic function abnormal [Recovering/Resolving]
